FAERS Safety Report 6669189-8 (Version None)
Quarter: 2010Q2

REPORT INFORMATION
  Report Type: 
  Country: None (occurrence: None)
  Receive Date: 20100406
  Receipt Date: 20100326
  Transmission Date: 20101027
  Serious: Yes (Hospitalization)
  Sender: FDA-Public Use
  Company Number: JP-JNJFOC-20100201841

PATIENT
  Sex: Female
  Weight: 41 kg

DRUGS (55)
  1. ITRIZOLE [Suspect]
     Indication: ACUTE LYMPHOCYTIC LEUKAEMIA
     Route: 048
  2. ONCOVIN [Interacting]
     Indication: ACUTE LYMPHOCYTIC LEUKAEMIA
     Route: 041
  3. ONCOVIN [Interacting]
     Route: 041
  4. DECADRON [Interacting]
     Indication: ACUTE LYMPHOCYTIC LEUKAEMIA
     Route: 029
  5. DECADRON [Interacting]
     Route: 029
  6. DECADRON [Suspect]
     Indication: ACUTE LYMPHOCYTIC LEUKAEMIA
     Route: 048
  7. DECADRON [Suspect]
     Route: 048
  8. DECADRON [Suspect]
     Route: 048
  9. VINCRISTINE SULFATE [Suspect]
     Indication: ACUTE LYMPHOCYTIC LEUKAEMIA
     Route: 041
  10. VINCRISTINE SULFATE [Suspect]
     Route: 041
  11. VINCRISTINE SULFATE [Suspect]
     Route: 041
  12. VINCRISTINE SULFATE [Suspect]
     Route: 041
  13. VINCRISTINE SULFATE [Suspect]
     Route: 041
  14. VINCRISTINE SULFATE [Suspect]
     Route: 041
  15. VINCRISTINE SULFATE [Suspect]
     Route: 041
  16. VINCRISTINE SULFATE [Suspect]
     Route: 041
  17. VINCRISTINE SULFATE [Suspect]
     Route: 041
  18. STEROIDS NOS [Concomitant]
     Indication: DRUG USE FOR UNKNOWN INDICATION
     Route: 065
  19. PREDONINE [Concomitant]
     Dosage: DOSE FROM 85MG T0 30 MG
     Route: 065
  20. PREDONINE [Concomitant]
     Route: 065
  21. DEXAMETHASONE [Concomitant]
     Indication: ACUTE LYMPHOCYTIC LEUKAEMIA
     Route: 065
  22. DECADRON [Concomitant]
     Route: 065
  23. DECADRON [Concomitant]
     Route: 065
  24. PARIET [Concomitant]
     Indication: DRUG USE FOR UNKNOWN INDICATION
     Route: 048
  25. MYSLEE [Concomitant]
     Indication: DRUG USE FOR UNKNOWN INDICATION
     Route: 048
  26. PAXIL [Concomitant]
     Indication: DRUG USE FOR UNKNOWN INDICATION
     Route: 048
  27. ULCERLMIN [Concomitant]
     Indication: DRUG USE FOR UNKNOWN INDICATION
     Route: 048
  28. URSO 250 [Concomitant]
     Indication: DRUG USE FOR UNKNOWN INDICATION
     Route: 048
  29. CIPROFLOXACIN HYDROCHLORIDE [Concomitant]
     Indication: DRUG USE FOR UNKNOWN INDICATION
     Route: 048
  30. METHOTREXATE [Concomitant]
     Indication: DRUG USE FOR UNKNOWN INDICATION
     Route: 029
  31. METHOTREXATE [Concomitant]
     Route: 029
  32. ADRIACIN [Concomitant]
     Indication: ACUTE LYMPHOCYTIC LEUKAEMIA
     Route: 041
  33. ADRIACIN [Concomitant]
     Route: 041
  34. ADRIACIN [Concomitant]
     Route: 041
  35. KYTRIL [Concomitant]
     Indication: DRUG USE FOR UNKNOWN INDICATION
     Route: 041
  36. KYTRIL [Concomitant]
     Route: 041
  37. METHYCOBAL [Concomitant]
     Indication: DRUG USE FOR UNKNOWN INDICATION
     Route: 048
  38. LASIX [Concomitant]
     Indication: DRUG USE FOR UNKNOWN INDICATION
     Route: 041
  39. LASIX [Concomitant]
     Route: 041
  40. PANTHENOL [Concomitant]
     Indication: DRUG USE FOR UNKNOWN INDICATION
     Route: 041
  41. GRAN [Concomitant]
     Indication: DRUG USE FOR UNKNOWN INDICATION
     Route: 065
  42. GRAN [Concomitant]
     Route: 065
  43. GRAN [Concomitant]
     Route: 065
  44. ANTIBIOTICS - RESISTANT LACTIC ACID BACTERIAE [Concomitant]
     Indication: DRUG USE FOR UNKNOWN INDICATION
     Route: 048
  45. FIRSTCIN [Concomitant]
     Indication: DRUG USE FOR UNKNOWN INDICATION
     Route: 042
  46. VANCOMYCIN HYDROCHLORIDE [Concomitant]
     Route: 065
  47. VANCOMYCIN HYDROCHLORIDE [Concomitant]
     Route: 065
  48. VANCOMYCIN HYDROCHLORIDE [Concomitant]
     Route: 065
  49. FASTIC [Concomitant]
     Indication: DRUG USE FOR UNKNOWN INDICATION
     Route: 048
  50. FASTIC [Concomitant]
     Route: 048
  51. STROCAIN [Concomitant]
     Indication: DRUG USE FOR UNKNOWN INDICATION
     Route: 048
  52. COTRIM [Concomitant]
     Indication: DRUG USE FOR UNKNOWN INDICATION
     Dosage: 4 DF
     Route: 048
  53. ADONA [Concomitant]
     Indication: DRUG USE FOR UNKNOWN INDICATION
     Route: 065
  54. KENKETSU GLOVENIN-I-NICHIYAKU [Concomitant]
     Indication: DRUG USE FOR UNKNOWN INDICATION
     Route: 042
  55. CYLOCIDE [Concomitant]
     Indication: DRUG USE FOR UNKNOWN INDICATION
     Route: 042

REACTIONS (5)
  - DRUG INTERACTION [None]
  - MALAISE [None]
  - MUSCULAR WEAKNESS [None]
  - NEUROPATHY PERIPHERAL [None]
  - PYREXIA [None]
